FAERS Safety Report 9528005 (Version 1)
Quarter: 2013Q3

REPORT INFORMATION
  Report Type: Other
  Country: GB (occurrence: GB)
  Receive Date: 20130917
  Receipt Date: 20130917
  Transmission Date: 20140515
  Serious: Yes (Death, Life-Threatening)
  Sender: FDA-Public Use
  Company Number: GB-MPIJNJ-2013JNJ000256

PATIENT
  Sex: 0

DRUGS (12)
  1. VELCADE [Suspect]
     Indication: AMYLOIDOSIS
     Dosage: 1.3 MG, UNK
     Route: 058
     Dates: start: 20130705, end: 20130809
  2. CYCLOPHOSPHAMIDE [Suspect]
     Indication: AMYLOIDOSIS
     Dosage: 50 MG, UNK
     Route: 048
     Dates: start: 20130705, end: 20130712
  3. DEXAMETHASONE [Suspect]
     Indication: AMYLOIDOSIS
     Dosage: 10 MG, UNK
     Route: 048
     Dates: start: 20130705, end: 20130809
  4. ACICLOVIR [Concomitant]
  5. AMIODARONE [Concomitant]
  6. BUMETANIDE [Concomitant]
  7. CO-TRIMOXAZOLE [Concomitant]
  8. DILTIAZEM HYDROCHLORIDE [Concomitant]
  9. LANSOPRAZOLE [Concomitant]
  10. METOLAZONE [Concomitant]
  11. SANDO K                            /00031402/ [Concomitant]
  12. ZOPICLONE [Concomitant]

REACTIONS (1)
  - Sudden death [Fatal]
